FAERS Safety Report 24963867 (Version 1)
Quarter: 2025Q1

REPORT INFORMATION
  Report Type: Other
  Country: US (occurrence: US)
  Receive Date: 20250213
  Receipt Date: 20250213
  Transmission Date: 20250409
  Serious: Yes (Other)
  Sender: Kanchan Healthcare
  Company Number: US-Kanchan Healthcare INC-2171061

PATIENT
  Age: 39 Year
  Sex: Female

DRUGS (9)
  1. CYCLOPHOSPHAMIDE [Suspect]
     Active Substance: CYCLOPHOSPHAMIDE
     Indication: Behcet^s syndrome
  2. METHOTREXATE [Suspect]
     Active Substance: METHOTREXATE
  3. Pegylated interferon alpha 2a [Concomitant]
  4. INTERFERON ALFA-2B [Concomitant]
     Active Substance: INTERFERON ALFA-2B
  5. PREDNISONE [Suspect]
     Active Substance: PREDNISONE
  6. INFLIXIMAB [Suspect]
     Active Substance: INFLIXIMAB
  7. ADALIMUMAB [Suspect]
     Active Substance: ADALIMUMAB
  8. CYCLOSPORINE [Suspect]
     Active Substance: CYCLOSPORINE
  9. AZATHIOPRINE [Suspect]
     Active Substance: AZATHIOPRINE

REACTIONS (2)
  - Cytomegalovirus chorioretinitis [Recovering/Resolving]
  - Product use in unapproved indication [Unknown]
